FAERS Safety Report 10418456 (Version 1)
Quarter: 2014Q3

REPORT INFORMATION
  Report Type: Spontaneous
  Country: US (occurrence: US)
  Receive Date: 20140829
  Receipt Date: 20140829
  Transmission Date: 20150326
  Serious: No
  Sender: FDA-Public Use
  Company Number: US-VIIV HEALTHCARE LIMITED-A1048700A

PATIENT
  Sex: Male

DRUGS (2)
  1. EPZICOM [Suspect]
     Active Substance: ABACAVIR SULFATE\LAMIVUDINE
     Route: 065
  2. TIVICAY [Suspect]
     Active Substance: DOLUTEGRAVIR SODIUM
     Route: 065

REACTIONS (8)
  - Dehydration [Unknown]
  - Adverse event [Unknown]
  - Headache [Unknown]
  - Pain in extremity [Unknown]
  - Blood glucose decreased [Unknown]
  - Nausea [Unknown]
  - Confusional state [Unknown]
  - Chest discomfort [Unknown]
